FAERS Safety Report 11927128 (Version 1)
Quarter: 2016Q1

REPORT INFORMATION
  Report Type: Spontaneous
  Country: US (occurrence: None)
  Receive Date: 20160115
  Receipt Date: 20160115
  Transmission Date: 20160526
  Serious: Yes (Disabling)
  Sender: FDA-Public Use
  Company Number: None

PATIENT
  Age: 68 Year
  Sex: Female
  Weight: 77.11 kg

DRUGS (10)
  1. NITROFUR MAC [Concomitant]
     Active Substance: NITROFURANTOIN
  2. GENTAMICIN. [Concomitant]
     Active Substance: GENTAMICIN
  3. CALCIUM [Concomitant]
     Active Substance: CALCIUM
  4. CONTRAVE [Suspect]
     Active Substance: BUPROPION HYDROCHLORIDE\NALTREXONE HYDROCHLORIDE
     Indication: WEIGHT DECREASED
     Route: 048
     Dates: start: 20150201, end: 20151101
  5. MULTI VITAMIN [Concomitant]
     Active Substance: VITAMINS
  6. FISH OIL [Concomitant]
     Active Substance: FISH OIL
  7. CRANBERRY. [Concomitant]
     Active Substance: CRANBERRY
  8. AUGMENTIN [Concomitant]
     Active Substance: AMOXICILLIN\CLAVULANATE POTASSIUM
  9. PROBIOTICS [Concomitant]
     Active Substance: PROBIOTICS NOS
  10. VITAMIN D [Concomitant]
     Active Substance: CHOLECALCIFEROL

REACTIONS (2)
  - Cystitis [None]
  - Urinary tract infection [None]

NARRATIVE: CASE EVENT DATE: 20150501
